FAERS Safety Report 4300957-3 (Version None)
Quarter: 2004Q1

REPORT INFORMATION
  Report Type: 
  Country: None (occurrence: None)
  Receive Date: 20040219
  Receipt Date: 20040205
  Transmission Date: 20041129
  Serious: Yes (Hospitalization)
  Sender: FDA-Public Use
  Company Number: 04P-087-0246490-00

PATIENT
  Age: 67 Year
  Sex: Male
  Weight: 70 kg

DRUGS (8)
  1. KALETRA [Suspect]
     Indication: HIV INFECTION
     Dosage: 1 CAPSULE, 6 IN 1 D, PER ORAL
     Route: 048
     Dates: end: 20011123
  2. ABACAVIR [Concomitant]
  3. NEVIRAPINE [Concomitant]
  4. RAMIPRIL [Concomitant]
  5. HYDROCHLOROTHIAZIDE [Concomitant]
  6. OMEPRAZOLE [Concomitant]
  7. ABACAVIR SULFATE [Concomitant]
  8. NEVIRAPINE [Concomitant]

REACTIONS (3)
  - CHOLELITHIASIS [None]
  - DIVERTICULUM INTESTINAL [None]
  - HEPATITIS CHOLESTATIC [None]
